FAERS Safety Report 7106769-X (Version None)
Quarter: 2010Q4

REPORT INFORMATION
  Report Type: 
  Country: None (occurrence: None)
  Receive Date: 20101116
  Receipt Date: 20101104
  Transmission Date: 20110411
  Serious: Yes (Other)
  Sender: FDA-Public Use
  Company Number: FR-MERCK-1011FRA00060

PATIENT
  Age: 55 Year
  Sex: Male

DRUGS (7)
  1. JANUVIA [Suspect]
     Indication: TYPE 2 DIABETES MELLITUS
     Route: 048
     Dates: start: 20100408, end: 20100701
  2. JANUVIA [Suspect]
     Route: 048
     Dates: start: 20100701, end: 20100729
  3. METFORMIN [Concomitant]
     Route: 048
  4. ROSUVASTATIN CALCIUM [Concomitant]
     Indication: DYSLIPIDAEMIA
     Route: 048
  5. ROSIGLITAZONE MALEATE [Concomitant]
     Route: 048
  6. IRBESARTAN [Concomitant]
     Indication: HYPERTENSION
     Route: 048
  7. GLICLAZIDE [Concomitant]
     Route: 048

REACTIONS (1)
  - DEPRESSION [None]
